FAERS Safety Report 6837423-7 (Version None)
Quarter: 2010Q3

REPORT INFORMATION
  Report Type: 
  Country: None (occurrence: None)
  Receive Date: 20100713
  Receipt Date: 20070512
  Transmission Date: 20110219
  Serious: No
  Sender: FDA-Public Use
  Company Number: US-PFIZER INC-2007039178

PATIENT
  Sex: Male
  Weight: 75.909 kg

DRUGS (7)
  1. CHANTIX [Suspect]
     Indication: SMOKING CESSATION THERAPY
     Route: 048
     Dates: start: 20070101
  2. ALDACTAZIDE [Concomitant]
  3. ZOLOFT [Concomitant]
  4. HYTRIN [Concomitant]
  5. LIPITOR [Concomitant]
  6. ACETYLSALICYLIC ACID [Concomitant]
  7. ANALGESICS [Concomitant]

REACTIONS (2)
  - NAUSEA [None]
  - VOMITING [None]
